FAERS Safety Report 14405298 (Version 2)
Quarter: 2018Q1

REPORT INFORMATION
  Report Type: Spontaneous
  Country: JP (occurrence: JP)
  Receive Date: 20180118
  Receipt Date: 20180301
  Transmission Date: 20180509
  Serious: Yes (Life-Threatening, Other)
  Sender: FDA-Public Use
  Company Number: JP-VIFOR (INTERNATIONAL) INC.-VIT-2017-13237

PATIENT
  Age: 78 Year
  Sex: Female

DRUGS (12)
  1. MIRCERA [Suspect]
     Active Substance: METHOXY POLYETHYLENE GLYCOL-EPOETIN BETA
     Route: 058
     Dates: start: 20170928, end: 20171109
  2. MUCODYNE [Suspect]
     Active Substance: CARBOCYSTEINE
     Indication: PRODUCT USED FOR UNKNOWN INDICATION
     Dosage: ONE DOSAGE FORM 500 (UNIT UNCERTAINTY)
     Route: 065
     Dates: start: 20170829, end: 20171027
  3. THYRADIN-S [Concomitant]
     Active Substance: LEVOTHYROXINE
     Route: 048
     Dates: start: 20170916
  4. SENNOSIDE A+B [Concomitant]
     Active Substance: SENNOSIDES A AND B
     Route: 065
     Dates: end: 20171028
  5. FLUITRAN [Concomitant]
     Active Substance: TRICHLORMETHIAZIDE
     Route: 065
     Dates: start: 20171025, end: 20171028
  6. ALDACTONE A [Concomitant]
     Active Substance: SPIRONOLACTONE
     Route: 065
  7. DIART [Suspect]
     Active Substance: AZOSEMIDE
     Indication: PRODUCT USED FOR UNKNOWN INDICATION
     Route: 065
     Dates: start: 20170926, end: 20171024
  8. PAROXETINE. [Concomitant]
     Active Substance: PAROXETINE
     Route: 065
     Dates: start: 20170829, end: 20171027
  9. AMLODIN OD [Concomitant]
     Active Substance: AMLODIPINE BESYLATE
     Route: 048
     Dates: start: 20170829
  10. MIRCERA [Suspect]
     Active Substance: METHOXY POLYETHYLENE GLYCOL-EPOETIN BETA
     Indication: NEPHROGENIC ANAEMIA
     Route: 058
     Dates: start: 20170901, end: 201709
  11. ASPARA POTASSIUM [Concomitant]
     Active Substance: POTASSIUM ASPARTATE
     Route: 065
     Dates: start: 20170922, end: 20171027
  12. VALSARTAN. [Concomitant]
     Active Substance: VALSARTAN
     Route: 065
     Dates: start: 20170829, end: 20171028

REACTIONS (8)
  - Hypothyroidism [Not Recovered/Not Resolved]
  - Renal failure [Unknown]
  - Cardiac failure chronic [Not Recovered/Not Resolved]
  - Thrombocytopenia [Recovering/Resolving]
  - Drug ineffective [Unknown]
  - Disseminated intravascular coagulation [Unknown]
  - Pneumonia [Unknown]
  - Cardiac failure [Unknown]

NARRATIVE: CASE EVENT DATE: 20170912
